FAERS Safety Report 25022054 (Version 1)
Quarter: 2025Q1

REPORT INFORMATION
  Report Type: Spontaneous
  Country: US (occurrence: US)
  Receive Date: 20250228
  Receipt Date: 20250228
  Transmission Date: 20250408
  Serious: No
  Sender: DR REDDYS
  Company Number: US-DRL-USA-USA/2025/02/002761

PATIENT
  Sex: Female

DRUGS (2)
  1. ZENATANE [Suspect]
     Active Substance: ISOTRETINOIN
     Indication: Acne
     Dosage: DRL BOX OF 30 (3X10)
     Route: 065
     Dates: start: 20240930
  2. ZENATANE [Suspect]
     Active Substance: ISOTRETINOIN
     Dosage: DRL BOX OF 30 (3X10)
     Route: 065

REACTIONS (5)
  - Epistaxis [Unknown]
  - Pain in extremity [Not Recovered/Not Resolved]
  - Arthralgia [Not Recovered/Not Resolved]
  - Fungal infection [Unknown]
  - Hordeolum [Unknown]
